FAERS Safety Report 10840219 (Version 1)
Quarter: 2015Q1

REPORT INFORMATION
  Report Type: Report from Study
  Country: US (occurrence: US)
  Receive Date: 20150220
  Receipt Date: 20150220
  Transmission Date: 20150721
  Serious: No
  Sender: FDA-Public Use
  Company Number: US-ABBVIE-14P-163-1247645-00

PATIENT
  Age: 66 Year
  Sex: Female
  Weight: 131.66 kg

DRUGS (1)
  1. HUMIRA [Suspect]
     Active Substance: ADALIMUMAB
     Indication: RHEUMATOID ARTHRITIS
     Dates: start: 2012

REACTIONS (5)
  - Musculoskeletal pain [Recovering/Resolving]
  - Fall [Recovering/Resolving]
  - Confusional state [Not Recovered/Not Resolved]
  - Upper limb fracture [Recovering/Resolving]
  - Device issue [Unknown]

NARRATIVE: CASE EVENT DATE: 2014
